FAERS Safety Report 8122493-9 (Version None)
Quarter: 2012Q1

REPORT INFORMATION
  Report Type: 
  Country: None (occurrence: None)
  Receive Date: 20120208
  Receipt Date: 20110329
  Transmission Date: 20120608
  Serious: No
  Sender: FDA-Public Use
  Company Number: US-ASTRAZENECA-2011SE17972

PATIENT
  Age: 69 Year
  Sex: Female

DRUGS (1)
  1. ACCOLATE [Suspect]
     Route: 048

REACTIONS (1)
  - LUNG DISORDER [None]
